FAERS Safety Report 10057952 (Version 2)
Quarter: 2014Q2

REPORT INFORMATION
  Report Type: Spontaneous
  Country: US (occurrence: US)
  Receive Date: 20140404
  Receipt Date: 20140429
  Transmission Date: 20141212
  Serious: Yes (Other)
  Sender: FDA-Public Use
  Company Number: US-ASTRAZENECA-2014SE21948

PATIENT
  Age: 69 Year
  Sex: Female

DRUGS (8)
  1. PRILOSEC OTC [Suspect]
     Indication: DYSPEPSIA
     Route: 048
     Dates: start: 2005, end: 2012
  2. PRILOSEC OTC [Suspect]
     Indication: GASTROOESOPHAGEAL REFLUX DISEASE
     Route: 048
     Dates: start: 2005, end: 2012
  3. METAMUCIL [Concomitant]
     Indication: GASTRIC DISORDER
  4. ALLEVE [Concomitant]
     Indication: ARTHRITIS
  5. COQ10 [Concomitant]
  6. 10 LIPITOR [Concomitant]
     Indication: BLOOD CHOLESTEROL
  7. MULTIVITAMIN [Concomitant]
  8. BABY ASPREN [Concomitant]

REACTIONS (3)
  - Chest pain [Unknown]
  - Abdominal distension [Recovered/Resolved]
  - Drug dose omission [Unknown]
